FAERS Safety Report 14289712 (Version 1)
Quarter: 2017Q4

REPORT INFORMATION
  Report Type: Spontaneous
  Country: US (occurrence: US)
  Receive Date: 20171215
  Receipt Date: 20171215
  Transmission Date: 20180321
  Serious: Yes (Hospitalization, Other)
  Sender: FDA-Public Use
  Company Number: US-TORRENT-00005570

PATIENT
  Age: 54 Year
  Sex: Female

DRUGS (1)
  1. CARBAMAZEPINE. [Suspect]
     Active Substance: CARBAMAZEPINE
     Indication: PRODUCT USED FOR UNKNOWN INDICATION

REACTIONS (8)
  - Nervous system disorder [Recovered/Resolved]
  - Electroencephalogram abnormal [Recovered/Resolved]
  - Respiratory depression [Recovered/Resolved]
  - Apnoea [Recovered/Resolved]
  - Brain oedema [Recovered/Resolved]
  - Areflexia [Recovered/Resolved]
  - Toxicity to various agents [Recovered/Resolved]
  - Intentional overdose [Recovered/Resolved]
